FAERS Safety Report 12393636 (Version 1)
Quarter: 2016Q2

REPORT INFORMATION
  Report Type: Spontaneous
  Country: SG (occurrence: SG)
  Receive Date: 20160523
  Receipt Date: 20160523
  Transmission Date: 20160815
  Serious: Yes (Other)
  Sender: FDA-Public Use
  Company Number: SG-SA-2016SA095823

PATIENT
  Age: 58 Year
  Sex: Female

DRUGS (1)
  1. TELFAST D [Suspect]
     Active Substance: FEXOFENADINE HYDROCHLORIDE\PSEUDOEPHEDRINE HYDROCHLORIDE
     Route: 065

REACTIONS (1)
  - Hyperventilation [Unknown]

NARRATIVE: CASE EVENT DATE: 20160401
